FAERS Safety Report 5579772-9 (Version None)
Quarter: 2007Q4

REPORT INFORMATION
  Report Type: 
  Country: None (occurrence: None)
  Receive Date: 20071130
  Receipt Date: 20070703
  Transmission Date: 20080405
  Serious: No
  Sender: FDA-Public Use
  Company Number: US200707002000

PATIENT
  Age: 55 Year
  Sex: Male

DRUGS (4)
  1. BYETTA [Suspect]
     Indication: TYPE 1 DIABETES MELLITUS
     Dosage: 5 UG, 2/D, SUBCUTANEOUS ; 5 UG, 4/D, SUBCUTANEOUS
     Route: 058
     Dates: start: 20060101, end: 20070601
  2. BYETTA [Suspect]
     Indication: TYPE 1 DIABETES MELLITUS
     Dosage: 5 UG, 2/D, SUBCUTANEOUS ; 5 UG, 4/D, SUBCUTANEOUS
     Route: 058
     Dates: start: 20070601
  3. INSULIN (INSULIN) [Concomitant]
  4. ZOLOFT [Concomitant]

REACTIONS (4)
  - BLOOD GLUCOSE INCREASED [None]
  - DRY MOUTH [None]
  - DYSARTHRIA [None]
  - INJECTION SITE EXTRAVASATION [None]
